FAERS Safety Report 15579370 (Version 3)
Quarter: 2018Q4

REPORT INFORMATION
  Report Type: Spontaneous
  Country: JP (occurrence: JP)
  Receive Date: 20181102
  Receipt Date: 20181120
  Transmission Date: 20190205
  Serious: Yes (Hospitalization)
  Sender: FDA-Public Use
  Company Number: JP-ABBVIE-18P-087-2518757-00

PATIENT
  Age: 90 Year
  Sex: Male

DRUGS (1)
  1. LEUPRORELIN ACETATE [Suspect]
     Active Substance: LEUPROLIDE ACETATE
     Indication: PROSTATE CANCER
     Dosage: 11.25 MG, Q3MONTHS
     Route: 058

REACTIONS (8)
  - Administration site pruritus [Recovered/Resolved]
  - Injection site reaction [Unknown]
  - Injection site extravasation [Unknown]
  - Pyrexia [Recovered/Resolved]
  - Injection site pruritus [Unknown]
  - Induration [Recovered/Resolved]
  - Administration site swelling [Recovered/Resolved]
  - Injection site erythema [Recovered/Resolved]

NARRATIVE: CASE EVENT DATE: 20180929
